FAERS Safety Report 26138119 (Version 1)
Quarter: 2025Q4

REPORT INFORMATION
  Report Type: Spontaneous
  Country: US (occurrence: US)
  Receive Date: 20251210
  Receipt Date: 20251210
  Transmission Date: 20260119
  Serious: Yes (Hospitalization, Other)
  Sender: BAXTER
  Company Number: US-BAXTER-2025BAX025336

PATIENT
  Age: 47 Year
  Sex: Female

DRUGS (4)
  1. CEFAZOLIN [Suspect]
     Active Substance: CEFAZOLIN
     Dosage: UNK
     Route: 042
  2. VANCOMYCIN [Suspect]
     Active Substance: VANCOMYCIN
     Dosage: UNK
     Route: 042
  3. PIPERACILLIN AND TAZOBACTAM [Suspect]
     Active Substance: PIPERACILLIN SODIUM\TAZOBACTAM SODIUM
     Dosage: UNK
     Route: 042
  4. REMDESIVIR [Suspect]
     Active Substance: REMDESIVIR
     Dosage: UNK
     Route: 065

REACTIONS (14)
  - Drug reaction with eosinophilia and systemic symptoms [Unknown]
  - Rash pruritic [Unknown]
  - Swelling face [Unknown]
  - Tachycardia [Unknown]
  - Papule [Unknown]
  - Skin plaque [Unknown]
  - Leukocytosis [Unknown]
  - Eosinophilia [Unknown]
  - Blood creatinine increased [Unknown]
  - Blood alkaline phosphatase increased [Unknown]
  - Eczema [Unknown]
  - Dermatitis [Unknown]
  - Neutrophilic dermatosis [Unknown]
  - Drug eruption [Unknown]
